FAERS Safety Report 8430680-5 (Version None)
Quarter: 2012Q2

REPORT INFORMATION
  Report Type: 
  Country: None (occurrence: None)
  Receive Date: 20120612
  Receipt Date: 20120608
  Transmission Date: 20120825
  Serious: No
  Sender: FDA-Public Use
  Company Number: US-TEVA-342317USA

PATIENT
  Sex: Female

DRUGS (1)
  1. PLAN B ONE-STEP [Suspect]
     Indication: POST COITAL CONTRACEPTION
     Dosage: 1.5 MILLIGRAM;
     Route: 048
     Dates: start: 20120529, end: 20120529

REACTIONS (13)
  - MENSTRUATION DELAYED [None]
  - DIZZINESS [None]
  - CHEST DISCOMFORT [None]
  - NERVOUSNESS [None]
  - HALLUCINATION [None]
  - MENTAL DISORDER [None]
  - HEADACHE [None]
  - PARANOIA [None]
  - NAUSEA [None]
  - FEELING ABNORMAL [None]
  - BREAST PAIN [None]
  - DYSPNOEA [None]
  - FATIGUE [None]
